FAERS Safety Report 9607266 (Version 4)
Quarter: 2013Q4

REPORT INFORMATION
  Report Type: Report from Study
  Country: JP (occurrence: JP)
  Receive Date: 20131009
  Receipt Date: 20131204
  Transmission Date: 20140711
  Serious: Yes (Death, Life-Threatening)
  Sender: FDA-Public Use
  Company Number: JP-009507513-1310JPN003326

PATIENT
  Age: 64 Year
  Sex: Male
  Weight: 45 kg

DRUGS (12)
  1. CANCIDAS FOR INTRAVENOUS DRIP INFUSION 50MG [Suspect]
     Indication: FEBRILE NEUTROPENIA
     Dosage: 50 MG, QD
     Route: 041
     Dates: start: 20130628, end: 20130802
  2. CANCIDAS FOR INTRAVENOUS DRIP INFUSION 70MG [Suspect]
     Indication: FEBRILE NEUTROPENIA
     Dosage: 70 MG, QD
     Route: 041
     Dates: start: 20130627, end: 20130627
  3. BAYASPIRIN [Concomitant]
     Indication: THROMBOSIS PROPHYLAXIS
     Dosage: 100 MG, QD, FORMULATION: ENT
     Route: 048
     Dates: start: 20130702, end: 20130708
  4. REVLIMID [Concomitant]
     Indication: PLASMA CELL MYELOMA
     Dosage: 15 MG, QD
     Route: 048
     Dates: start: 20130702, end: 20130708
  5. LENADEX [Concomitant]
     Indication: PLASMA CELL MYELOMA
     Dosage: 20 MG, QD
     Route: 048
     Dates: start: 20130702, end: 20130703
  6. ACYCLOVIR [Concomitant]
     Indication: PROPHYLAXIS
     Dosage: 250 MG, QD
     Route: 048
     Dates: start: 20130702, end: 20130708
  7. OXYCONTIN [Concomitant]
     Indication: PALLIATIVE CARE
     Dosage: 5 MG, BID
     Route: 048
     Dates: start: 20130707, end: 20130710
  8. CLARITH [Concomitant]
     Indication: PNEUMONIA ASPIRATION
     Dosage: 200 MG, BID
     Route: 048
     Dates: start: 20130708, end: 20130714
  9. MAXIPIME [Concomitant]
     Indication: PNEUMONIA ASPIRATION
     Dosage: 1 G, BID
     Route: 042
     Dates: start: 20130627, end: 20130707
  10. MEROPEN [Concomitant]
     Indication: PNEUMONIA ASPIRATION
     Dosage: 0.5 G, BID
     Route: 041
     Dates: start: 20130702, end: 20130720
  11. TRYPTANOL [Concomitant]
     Indication: DEPRESSION
     Dosage: 25 MG, QD
     Route: 048
     Dates: start: 20130614, end: 20130627
  12. PREDONINE [Concomitant]
     Indication: PLASMA CELL MYELOMA
     Dosage: 5 MG, QD
     Route: 048
     Dates: start: 20130614, end: 20130627

REACTIONS (2)
  - Plasma cell myeloma [Fatal]
  - Liver disorder [Fatal]
